FAERS Safety Report 6775114-1 (Version None)
Quarter: 2010Q2

REPORT INFORMATION
  Report Type: 
  Country: None (occurrence: None)
  Receive Date: 20100617
  Receipt Date: 20100608
  Transmission Date: 20101027
  Serious: Yes (Hospitalization, Other)
  Sender: FDA-Public Use
  Company Number: SI-PERRIGO-10SI010276

PATIENT
  Age: 26 Year
  Sex: Male

DRUGS (2)
  1. ACETAMINOPHEN SLOW RELEASE [Suspect]
     Indication: DRUG USE FOR UNKNOWN INDICATION
     Dosage: 50 MG, SINGLE
     Route: 065
  2. ACETAMINOPHEN SLOW RELEASE [Suspect]
     Dosage: UNK, PRN
     Route: 048

REACTIONS (4)
  - BURNING SENSATION [None]
  - DRUG ERUPTION [None]
  - ERYTHEMA [None]
  - SWELLING [None]
